FAERS Safety Report 9197812 (Version 2)
Quarter: 2013Q1

REPORT INFORMATION
  Report Type: Spontaneous
  Country: US (occurrence: US)
  Receive Date: 20130328
  Receipt Date: 20130328
  Transmission Date: 20140127
  Serious: No
  Sender: FDA-Public Use
  Company Number: US-GALDERMA-US-GDP-11412111

PATIENT
  Sex: Female

DRUGS (2)
  1. CLOBEX [Suspect]
     Indication: ALOPECIA
     Route: 061
  2. CLOBEX [Suspect]
     Indication: ALOPECIA
     Route: 061

REACTIONS (11)
  - Staphylococcal infection [Unknown]
  - Pollakiuria [Unknown]
  - Night sweats [Unknown]
  - Feeling abnormal [Unknown]
  - Decreased appetite [Unknown]
  - Ulcer [Unknown]
  - Ear infection viral [Unknown]
  - Lip swelling [Not Recovered/Not Resolved]
  - Off label use [None]
  - Malaise [Unknown]
  - Activities of daily living impaired [Unknown]
